FAERS Safety Report 10098803 (Version 1)
Quarter: 2014Q2

REPORT INFORMATION
  Report Type: Report from Study
  Country: ES (occurrence: ES)
  Receive Date: 20140423
  Receipt Date: 20140423
  Transmission Date: 20141212
  Serious: Yes (Other)
  Sender: FDA-Public Use
  Company Number: ES-ROCHE-1382794

PATIENT
  Age: 56 Year
  Sex: Male

DRUGS (5)
  1. PEG-INTERFERON ALFA 2A [Suspect]
     Indication: CHRONIC HEPATITIS C
     Route: 058
     Dates: start: 20130408, end: 20140117
  2. RIBAVIRIN [Suspect]
     Indication: CHRONIC HEPATITIS C
     Route: 048
     Dates: start: 20130614, end: 20140117
  3. INCIVO [Concomitant]
     Indication: CHRONIC HEPATITIS C
     Route: 048
     Dates: start: 20130408, end: 20130701
  4. PARACETAMOL [Concomitant]
     Route: 048
     Dates: start: 20130408
  5. OMEPRAZOL [Concomitant]
     Route: 048
     Dates: start: 20130614

REACTIONS (2)
  - Lymphoproliferative disorder [Recovering/Resolving]
  - Pancytopenia [Recovered/Resolved]
